FAERS Safety Report 5958905-6 (Version None)
Quarter: 2008Q4

REPORT INFORMATION
  Report Type: 
  Country: None (occurrence: None)
  Receive Date: 20081118
  Receipt Date: 20081113
  Transmission Date: 20090506
  Serious: Yes (Death)
  Sender: FDA-Public Use
  Company Number: US025014

PATIENT
  Age: 51 Year
  Sex: Male

DRUGS (1)
  1. TREANDA [Suspect]
     Indication: CHRONIC LYMPHOCYTIC LEUKAEMIA
     Dosage: 185 MG CYCLICAL INTRAVENOUS
     Route: 042
     Dates: start: 20080627, end: 20080919

REACTIONS (5)
  - DISEASE PROGRESSION [None]
  - EATING DISORDER [None]
  - FATIGUE [None]
  - GENERAL PHYSICAL HEALTH DETERIORATION [None]
  - PAIN [None]
